FAERS Safety Report 11737724 (Version 1)
Quarter: 2015Q4

REPORT INFORMATION
  Report Type: Spontaneous
  Country: US (occurrence: US)
  Receive Date: 20151113
  Receipt Date: 20151113
  Transmission Date: 20160304
  Serious: Yes (Other)
  Sender: FDA-Public Use
  Company Number: US-SA-2015SA175066

PATIENT
  Age: 60 Year
  Sex: Female

DRUGS (3)
  1. COUMADIN [Suspect]
     Active Substance: WARFARIN SODIUM
     Route: 065
  2. LOVENOX [Suspect]
     Active Substance: ENOXAPARIN SODIUM
     Indication: THROMBOSIS
     Route: 051
     Dates: start: 200910, end: 201310
  3. COUMADIN [Suspect]
     Active Substance: WARFARIN SODIUM
     Route: 065

REACTIONS (1)
  - Cerebrovascular accident [Unknown]
